FAERS Safety Report 21731629 (Version 1)
Quarter: 2022Q4

REPORT INFORMATION
  Report Type: Other
  Country: GB (occurrence: GB)
  Receive Date: 20221215
  Receipt Date: 20221215
  Transmission Date: 20230112
  Serious: Yes (Other)
  Sender: FDA-Public Use
  Company Number: None

PATIENT
  Age: 38 Year
  Sex: Female
  Weight: 83 kg

DRUGS (8)
  1. IBUPROFEN [Suspect]
     Active Substance: IBUPROFEN
     Indication: Product used for unknown indication
     Dosage: 200 MILLIGRAM, TABLET
     Route: 065
  2. AMITRIPTYLINE HYDROCHLORIDE [Concomitant]
     Active Substance: AMITRIPTYLINE HYDROCHLORIDE
     Indication: Product used for unknown indication
     Dosage: 1 DOSAGE FORM/DAY, AT BED TIME, AT NIGHT AND INCREASE TO 20MG A..., TABLET
     Route: 065
     Dates: start: 20220316
  3. BECLOMETHASONE\FORMOTEROL [Concomitant]
     Active Substance: BECLOMETHASONE\FORMOTEROL
     Indication: Dyspnoea
     Dosage: 4 DOSAGE FORM/DAY
     Route: 065
     Dates: start: 20220114
  4. MEBEVERINE HYDROCHLORIDE [Concomitant]
     Active Substance: MEBEVERINE HYDROCHLORIDE
     Indication: Product used for unknown indication
     Dosage: 3 DOSAGE FORM/DAY, TABLET
     Route: 065
     Dates: start: 20220316
  5. MONTELUKAST [Concomitant]
     Active Substance: MONTELUKAST SODIUM
     Indication: Product used for unknown indication
     Dosage: 1 DOSAGE FORM/DAY, AT BED TIME,AT NIGHT
     Route: 065
     Dates: start: 20220114
  6. OMEPRAZOLE [Concomitant]
     Active Substance: OMEPRAZOLE
     Indication: Dyspepsia
     Dosage: 2 DOSAGE FORM, PRN, DAILY
     Route: 065
     Dates: start: 20220629
  7. VENTOLIN [Concomitant]
     Active Substance: ALBUTEROL SULFATE
     Indication: Product used for unknown indication
     Dosage: 2 DOSAGE FORM, PRN,IF USING REGULARLY, P...
     Dates: start: 20220114
  8. ZOPICLONE [Concomitant]
     Active Substance: ZOPICLONE
     Indication: Product used for unknown indication
     Dosage: 1 DOSAGE FORM/DAY, AT BED TIME,AT NIGHT, ALTERNATE NIGHTS
     Route: 065
     Dates: start: 20220907, end: 20221005

REACTIONS (2)
  - Wheezing [Unknown]
  - Asthma [Unknown]
